FAERS Safety Report 5786656-X (Version None)
Quarter: 2008Q2

REPORT INFORMATION
  Report Type: 
  Country: None (occurrence: None)
  Receive Date: 20080618
  Receipt Date: 20080605
  Transmission Date: 20081010
  Serious: Yes (Death, Hospitalization, Other)
  Sender: FDA-Public Use
  Company Number: 028944

PATIENT
  Age: 19 Year
  Sex: Male

DRUGS (2)
  1. TRETINOIN [Suspect]
     Indication: ACUTE PROMYELOCYTIC LEUKAEMIA
     Dosage: RESTARTED ON DAY +6 AT 50% DOSE,
  2. DAUNORUBICIN HCL [Concomitant]

REACTIONS (17)
  - ABDOMINAL RIGIDITY [None]
  - CHEST X-RAY ABNORMAL [None]
  - CREPITATIONS [None]
  - HYPOTENSION [None]
  - HYPOXIA [None]
  - ILEAL PERFORATION [None]
  - NEUTROPHIL COUNT DECREASED [None]
  - OXYGEN SATURATION DECREASED [None]
  - PERITONITIS [None]
  - PO2 DECREASED [None]
  - PYREXIA [None]
  - RALES [None]
  - RESPIRATORY RATE INCREASED [None]
  - RETINOIC ACID SYNDROME [None]
  - SOMNOLENCE [None]
  - TACHYCARDIA [None]
  - TACHYPNOEA [None]
